FAERS Safety Report 14453598 (Version 2)
Quarter: 2018Q1

REPORT INFORMATION
  Report Type: Spontaneous
  Country: FR (occurrence: FR)
  Receive Date: 20180129
  Receipt Date: 20180226
  Transmission Date: 20180509
  Serious: Yes (Other)
  Sender: FDA-Public Use
  Company Number: FR-TEVA-2018-FR-850385

PATIENT
  Sex: Female

DRUGS (1)
  1. CABERGOLINE TEVA 0.5 MG [Suspect]
     Active Substance: CABERGOLINE
     Indication: BLOOD PROLACTIN INCREASED
     Dosage: 1 DOSAGE FORMS DAILY; STARTED ONE MONTH EARLIER, TABLET TAKEN IN THE MORNING
     Route: 048
     Dates: start: 201712

REACTIONS (2)
  - Abortion spontaneous [Unknown]
  - Maternal exposure during pregnancy [Unknown]
